FAERS Safety Report 9377521 (Version 3)
Quarter: 2014Q2

REPORT INFORMATION
  Report Type: Spontaneous
  Country: JP (occurrence: JP)
  Receive Date: 20130701
  Receipt Date: 20140428
  Transmission Date: 20141212
  Serious: Yes (Death)
  Sender: FDA-Public Use
  Company Number: JP-SANOFI-AVENTIS-2013SA065709

PATIENT
  Age: 70 Year
  Sex: Male
  Weight: 35.8 kg

DRUGS (23)
  1. CISPLATIN [Suspect]
     Indication: HEAD AND NECK CANCER
     Dosage: DAY 1
     Route: 042
     Dates: start: 20121012, end: 20121012
  2. FLUOROURACIL [Suspect]
     Indication: HEAD AND NECK CANCER
     Dosage: ON THE 1ST THROUGH 4 DAYS OF EVERY CYCLE
     Route: 042
     Dates: start: 20121012, end: 20121015
  3. ONETAXOTERE [Suspect]
     Indication: HEAD AND NECK CANCER
     Dosage: DAY 1
     Route: 042
     Dates: start: 20121012, end: 20121012
  4. TS-1 [Suspect]
     Indication: HEAD AND NECK CANCER
     Dosage: 80 MG/DOSE, FROM MONDAY TO FRIDAY 3 WEEKS ON AND 1 WEEK OFF
     Route: 048
     Dates: start: 20120528, end: 20120921
  5. ALOXI [Concomitant]
     Indication: HEAD AND NECK CANCER
     Route: 042
     Dates: start: 20121012
  6. EMEND [Concomitant]
     Indication: HEAD AND NECK CANCER
     Dosage: 1 CAPSULE SET/DAY
     Route: 048
     Dates: start: 20121012
  7. DEXART [Concomitant]
     Indication: HEAD AND NECK CANCER
     Dosage: 6.6 MG DAILY FOR 2 DAYS, 3.3 MG DAILY FOR 2 DAYS
     Route: 042
     Dates: start: 20121012, end: 20121015
  8. LOXOPROFEN [Concomitant]
     Route: 048
  9. MIYA-BM [Concomitant]
     Route: 048
  10. LAC B [Concomitant]
     Dosage: GRANULAR POWDER
     Route: 048
  11. MUCOSTA [Concomitant]
     Route: 048
  12. MUCODYNE [Concomitant]
     Route: 048
  13. KLARICID [Concomitant]
     Route: 048
  14. SALAGEN [Concomitant]
     Route: 048
  15. PARIET [Concomitant]
     Route: 048
  16. OXYCONTIN [Concomitant]
     Route: 048
  17. OXINORM [Concomitant]
     Dosage: POWDER
     Route: 048
  18. LASIX [Concomitant]
  19. PICIBANIL [Concomitant]
     Dates: start: 20120604, end: 20120608
  20. PICIBANIL [Concomitant]
     Dates: start: 20120706, end: 20120710
  21. XYLOCAINE [Concomitant]
  22. PRIMPERAN [Concomitant]
  23. THERAPEUTIC RADIOPHARMACEUTICALS [Concomitant]
     Indication: HEAD AND NECK CANCER
     Dosage: DOSE: 50 GY (A TOTAL OF 25 TIMES)
     Dates: start: 20120530, end: 20120921

REACTIONS (13)
  - Febrile neutropenia [Fatal]
  - Necrotising colitis [Fatal]
  - Haematochezia [Fatal]
  - Abdominal pain [Fatal]
  - Sepsis [Fatal]
  - White blood cell count decreased [Fatal]
  - Disseminated intravascular coagulation [Fatal]
  - Platelet count decreased [Fatal]
  - Shock [Fatal]
  - Restlessness [Fatal]
  - Loss of consciousness [Fatal]
  - Blood pressure decreased [Fatal]
  - Off label use [Unknown]
